FAERS Safety Report 17022423 (Version 1)
Quarter: 2019Q4

REPORT INFORMATION
  Report Type: Spontaneous
  Country: NO (occurrence: NO)
  Receive Date: 20191112
  Receipt Date: 20191112
  Transmission Date: 20200122
  Serious: Yes (Hospitalization)
  Sender: FDA-Public Use
  Company Number: NO-JNJFOC-20191105984

PATIENT
  Age: 71 Year
  Sex: Female

DRUGS (1)
  1. XEPLION [Suspect]
     Active Substance: PALIPERIDONE PALMITATE
     Indication: SCHIZOPHRENIA
     Route: 030
     Dates: start: 2012

REACTIONS (4)
  - Product dose omission [Unknown]
  - Hospitalisation [Unknown]
  - Incorrect dose administered [Unknown]
  - Off label use [Unknown]
